FAERS Safety Report 11221481 (Version 3)
Quarter: 2017Q1

REPORT INFORMATION
  Report Type: Spontaneous
  Country: US (occurrence: US)
  Receive Date: 20150626
  Receipt Date: 20170329
  Transmission Date: 20170428
  Serious: No
  Sender: FDA-Public Use
  Company Number: US-PFIZER INC-2015212146

PATIENT
  Age: 43 Year
  Sex: Male

DRUGS (14)
  1. ATROVENT [Suspect]
     Active Substance: IPRATROPIUM BROMIDE
     Dosage: UNK
  2. TEGRETOL [Suspect]
     Active Substance: CARBAMAZEPINE
     Dosage: UNK
  3. KEPPRA [Suspect]
     Active Substance: LEVETIRACETAM
     Dosage: UNK
  4. TEMAZEPAM. [Suspect]
     Active Substance: TEMAZEPAM
     Dosage: UNK
  5. NEURONTIN [Suspect]
     Active Substance: GABAPENTIN
     Dosage: UNK
  6. DILANTIN [Suspect]
     Active Substance: PHENYTOIN
     Dosage: UNK
  7. TRAMADOL. [Suspect]
     Active Substance: TRAMADOL
     Dosage: UNK
  8. LAMICTAL [Suspect]
     Active Substance: LAMOTRIGINE
     Dosage: UNK
  9. BELSOMRA [Suspect]
     Active Substance: SUVOREXANT
     Dosage: UNK
  10. LYRICA [Suspect]
     Active Substance: PREGABALIN
     Dosage: UNK
  11. ALOE VERA [Suspect]
     Active Substance: ALOE VERA LEAF
     Dosage: UNK
  12. XALATAN [Suspect]
     Active Substance: LATANOPROST
     Dosage: UNK
  13. DEPAKOTE [Suspect]
     Active Substance: DIVALPROEX SODIUM
     Dosage: UNK
  14. VIMPAT [Suspect]
     Active Substance: LACOSAMIDE
     Dosage: UNK

REACTIONS (1)
  - Drug hypersensitivity [Unknown]
